FAERS Safety Report 18890722 (Version 2)
Quarter: 2021Q2

REPORT INFORMATION
  Report Type: Spontaneous
  Country: US (occurrence: US)
  Receive Date: 20210215
  Receipt Date: 20210512
  Transmission Date: 20210717
  Serious: No
  Sender: FDA-Public Use
  Company Number: US-SA-2021SA046128

PATIENT
  Age: 14 Year
  Sex: Female

DRUGS (4)
  1. DUPIXENT [Suspect]
     Active Substance: DUPILUMAB
     Indication: DERMATITIS ATOPIC
     Dosage: 300 MG, QOW
     Route: 058
     Dates: start: 20191019
  2. VISTARIL [HYDROXYZINE HYDROCHLORIDE] [Concomitant]
  3. CLARITINE [Concomitant]
     Active Substance: LORATADINE
  4. ALLEGRA [Concomitant]
     Active Substance: FEXOFENADINE HYDROCHLORIDE

REACTIONS (3)
  - Dermatitis atopic [Not Recovered/Not Resolved]
  - Inappropriate schedule of product administration [Unknown]
  - Rash [Unknown]

NARRATIVE: CASE EVENT DATE: 20210421
